FAERS Safety Report 4640461-6 (Version None)
Quarter: 2005Q2

REPORT INFORMATION
  Report Type: 
  Country: None (occurrence: None)
  Receive Date: 20050419
  Receipt Date: 20050406
  Transmission Date: 20051028
  Serious: Yes (Other)
  Sender: FDA-Public Use
  Company Number: 2004216774US

PATIENT
  Age: 68 Year
  Sex: Female
  Weight: 122.4712 kg

DRUGS (7)
  1. PROVERA [Suspect]
     Indication: HORMONE REPLACEMENT THERAPY
     Dates: start: 19790101, end: 19850101
  2. CONJUGATED ESTROGENS [Suspect]
     Indication: HORMONE REPLACEMENT THERAPY
     Dates: start: 19850101, end: 20020709
  3. PROVELLA-14 (ESTROGENS, CONJUGATED, MEDROXYPROGESTERONE ACETATE) [Suspect]
     Indication: HORMONE REPLACEMENT THERAPY
     Dates: start: 19790101, end: 19850101
  4. ESTROGEN NOS (ESTROGEN NOS [Suspect]
     Indication: HORMONE REPLACEMENT THERAPY
  5. IBUPROFEN [Concomitant]
  6. DYAZIDE [Concomitant]
  7. LEVOTHYROXINE SODIUM [Concomitant]

REACTIONS (7)
  - BREAST CANCER [None]
  - CONFUSIONAL STATE [None]
  - DEPRESSION [None]
  - HOT FLUSH [None]
  - LYMPHOEDEMA [None]
  - MOOD SWINGS [None]
  - POST PROCEDURAL COMPLICATION [None]
